FAERS Safety Report 5266581-3 (Version None)
Quarter: 2007Q1

REPORT INFORMATION
  Report Type: 
  Country: None (occurrence: None)
  Receive Date: 20070315
  Receipt Date: 20070306
  Transmission Date: 20070707
  Serious: Yes (Other)
  Sender: FDA-Public Use
  Company Number: US-PFIZER INC-2007000252

PATIENT
  Sex: Female
  Weight: 62.1 kg

DRUGS (2)
  1. LIPITOR [Suspect]
     Indication: BLOOD CHOLESTEROL INCREASED
     Route: 048
     Dates: start: 20060317, end: 20060919
  2. ALL OTHER THERAPEUTIC PRODUCTS [Concomitant]

REACTIONS (9)
  - ARTHRALGIA [None]
  - BLOOD ALKALINE PHOSPHATASE INCREASED [None]
  - FOOT FRACTURE [None]
  - GAIT DISTURBANCE [None]
  - METASTASES TO BONE [None]
  - MUSCLE TWITCHING [None]
  - MYALGIA [None]
  - PAIN IN EXTREMITY [None]
  - RESTLESS LEGS SYNDROME [None]
